FAERS Safety Report 25475914 (Version 1)
Quarter: 2025Q2

REPORT INFORMATION
  Report Type: Spontaneous
  Country: US (occurrence: US)
  Receive Date: 20250625
  Receipt Date: 20250625
  Transmission Date: 20250717
  Serious: No
  Sender: ELI LILLY AND COMPANY
  Company Number: US-ELI_LILLY_AND_COMPANY-US202506014169

PATIENT
  Age: 73 Year
  Sex: Female

DRUGS (10)
  1. MOUNJARO [Suspect]
     Active Substance: TIRZEPATIDE
     Indication: Diabetes mellitus
     Route: 058
     Dates: start: 202503
  2. MOUNJARO [Suspect]
     Active Substance: TIRZEPATIDE
     Indication: Diabetes mellitus
     Route: 058
     Dates: start: 202503
  3. MOUNJARO [Suspect]
     Active Substance: TIRZEPATIDE
     Indication: Diabetes mellitus
     Route: 058
     Dates: start: 202503
  4. MOUNJARO [Suspect]
     Active Substance: TIRZEPATIDE
     Indication: Diabetes mellitus
     Route: 058
     Dates: start: 202503
  5. MOUNJARO [Suspect]
     Active Substance: TIRZEPATIDE
     Route: 058
     Dates: start: 20250610
  6. MOUNJARO [Suspect]
     Active Substance: TIRZEPATIDE
     Route: 058
     Dates: start: 20250610
  7. MOUNJARO [Suspect]
     Active Substance: TIRZEPATIDE
     Route: 058
     Dates: start: 20250610
  8. MOUNJARO [Suspect]
     Active Substance: TIRZEPATIDE
     Route: 058
     Dates: start: 20250610
  9. LANTUS [Concomitant]
     Active Substance: INSULIN GLARGINE
     Indication: Diabetes mellitus
  10. NOVOLOG [Concomitant]
     Active Substance: INSULIN ASPART
     Indication: Diabetes mellitus

REACTIONS (6)
  - Blood glucose increased [Not Recovered/Not Resolved]
  - Muscular weakness [Not Recovered/Not Resolved]
  - Confusional state [Not Recovered/Not Resolved]
  - Feeding disorder [Not Recovered/Not Resolved]
  - Asthenia [Not Recovered/Not Resolved]
  - Nausea [Not Recovered/Not Resolved]

NARRATIVE: CASE EVENT DATE: 20250601
